FAERS Safety Report 5945188-6 (Version None)
Quarter: 2008Q4

REPORT INFORMATION
  Report Type: 
  Country: None (occurrence: None)
  Receive Date: 20081107
  Receipt Date: 20081031
  Transmission Date: 20090506
  Serious: Yes (Other)
  Sender: FDA-Public Use
  Company Number: B0545007A

PATIENT
  Age: 32 Year
  Sex: Female

DRUGS (7)
  1. EPIVIR [Suspect]
     Indication: HIV INFECTION
     Route: 048
     Dates: start: 20040427
  2. ZIAGEN [Suspect]
     Indication: HIV INFECTION
     Route: 048
     Dates: start: 20040427, end: 20040513
  3. COMBIVIR [Suspect]
     Indication: HIV INFECTION
     Route: 048
     Dates: start: 20040831
  4. TELZIR [Suspect]
     Indication: HIV INFECTION
     Route: 048
     Dates: start: 20050314
  5. SUSTIVA [Suspect]
     Indication: HIV INFECTION
     Route: 048
  6. ZERIT [Suspect]
     Indication: HIV INFECTION
     Route: 048
     Dates: start: 20040513
  7. NORVIR [Suspect]
     Indication: HIV INFECTION
     Route: 048
     Dates: start: 20050314

REACTIONS (4)
  - DRUG RASH WITH EOSINOPHILIA AND SYSTEMIC SYMPTOMS [None]
  - GASTROINTESTINAL DISORDER [None]
  - LIPODYSTROPHY ACQUIRED [None]
  - NERVOUS SYSTEM DISORDER [None]
